FAERS Safety Report 8920429 (Version 2)
Quarter: 2012Q4

REPORT INFORMATION
  Report Type: 
  Country: AU (occurrence: AU)
  Receive Date: 20121122
  Receipt Date: 20121218
  Transmission Date: 20130627
  Serious: No
  Sender: FDA-Public Use
  Company Number: AU-JNJFOC-20121104286

PATIENT
  Age: 6 None
  Sex: Female

DRUGS (1)
  1. DUROGESIC [Suspect]
     Indication: PAIN
     Dosage: for around 3 years
     Route: 062
     Dates: start: 200911

REACTIONS (5)
  - Application site erythema [Not Recovered/Not Resolved]
  - Application site discolouration [Not Recovered/Not Resolved]
  - Drug dose omission [Unknown]
  - Application site perspiration [Unknown]
  - Product quality issue [Unknown]
